FAERS Safety Report 7635213-9 (Version None)
Quarter: 2011Q3

REPORT INFORMATION
  Report Type: 
  Country: None (occurrence: None)
  Receive Date: 20110726
  Receipt Date: 20110722
  Transmission Date: 20111222
  Serious: Yes (Death, Other)
  Sender: FDA-Public Use
  Company Number: US-ASTRAZENECA-2011SE38714

PATIENT
  Age: 74 Year
  Sex: Male

DRUGS (15)
  1. SEROQUEL XR [Suspect]
     Indication: INSOMNIA
     Dosage: 1.25 TABLET EVERY EVENING
     Route: 048
     Dates: start: 20101230
  2. REGLAN [Concomitant]
     Route: 048
     Dates: start: 20101230
  3. PLAVIX [Concomitant]
     Route: 048
     Dates: start: 20101230
  4. SEROQUEL XR [Suspect]
     Route: 048
  5. SEROQUEL XR [Suspect]
     Route: 048
     Dates: end: 20110101
  6. POTASSIUM [Concomitant]
     Route: 048
     Dates: start: 20101230
  7. ASPIRIN [Concomitant]
     Route: 048
     Dates: start: 20101230
  8. TYLENOL ARTHRITIS EXT RELIEF [Concomitant]
     Indication: PAIN
     Dosage: 1-2 TABLET ER EVERY 8 HOURS AS NEEDED
     Route: 048
     Dates: start: 20101230
  9. LEXAPRO [Concomitant]
     Route: 048
     Dates: start: 20101230
  10. HYDROCHLOROTHIAZIDE [Concomitant]
     Route: 048
     Dates: start: 20101230
  11. TRAZODONE HCL [Concomitant]
     Route: 048
     Dates: start: 20101230
  12. CRESTOR [Suspect]
     Route: 048
     Dates: end: 20110101
  13. NAMENDA [Concomitant]
     Route: 048
     Dates: start: 20101230
  14. TWYNSTA [Concomitant]
     Dosage: 40MG/ 5 MG ONE TABLET TWO TIMES A DAY
     Route: 048
     Dates: start: 20101230
  15. ARICEPT [Concomitant]
     Route: 048
     Dates: start: 20101230

REACTIONS (2)
  - OFF LABEL USE [None]
  - DEMENTIA ALZHEIMER'S TYPE [None]
